FAERS Safety Report 10681963 (Version 1)
Quarter: 2014Q4

REPORT INFORMATION
  Report Type: Spontaneous
  Country: US (occurrence: None)
  Receive Date: 20141224
  Receipt Date: 20141224
  Transmission Date: 20150529
  Serious: Yes (Death)
  Sender: FDA-Public Use
  Company Number: HA14-456-AE

PATIENT
  Age: 42 Year
  Sex: Male

DRUGS (1)
  1. HCB / IBU TABLETS, USP 7.5 MG / 200 MG (UNKNOWN NFR) [Suspect]
     Active Substance: HYDROCODONE BITARTRATE\IBUPROFEN
     Route: 048

REACTIONS (2)
  - Drug dependence [None]
  - Intentional overdose [None]
